FAERS Safety Report 4396941-4 (Version None)
Quarter: 2004Q3

REPORT INFORMATION
  Report Type: 
  Country: None (occurrence: None)
  Receive Date: 20040708
  Receipt Date: 20040625
  Transmission Date: 20050211
  Serious: Yes (Death)
  Sender: FDA-Public Use
  Company Number: BE-JNJFOC-20040607208

PATIENT
  Age: 68 Year
  Sex: Male

DRUGS (2)
  1. REMICADE [Suspect]
     Indication: RHEUMATOID ARTHRITIS
     Dosage: INTRAVENOUS
     Route: 042
     Dates: start: 20020401
  2. METHOTREXATE [Concomitant]

REACTIONS (3)
  - LUNG CANCER METASTATIC [None]
  - METASTASES TO BONE [None]
  - METASTASES TO LIVER [None]
